FAERS Safety Report 8407205-3 (Version None)
Quarter: 2012Q2

REPORT INFORMATION
  Report Type: 
  Country: None (occurrence: None)
  Receive Date: 20120604
  Receipt Date: 20120523
  Transmission Date: 20120825
  Serious: Yes (Hospitalization, Other)
  Sender: FDA-Public Use
  Company Number: US-ELI_LILLY_AND_COMPANY-US201106002028

PATIENT
  Sex: Female

DRUGS (12)
  1. FORTEO [Suspect]
     Indication: OSTEOPOROSIS
     Dosage: 20 UG, QD
     Route: 065
     Dates: start: 20101001
  2. FORTEO [Suspect]
     Dosage: 20 UG, QD
     Route: 065
  3. SYNTHROID [Concomitant]
     Dosage: 0.25 UNK, UNK
  4. COREG [Concomitant]
  5. CITALOPRAM [Concomitant]
     Dosage: 100 MG, UNK
  6. FORTEO [Suspect]
     Dosage: 20 UG, QD
     Route: 065
  7. ASPIRIN [Concomitant]
     Dosage: UNK, QD
  8. VISTARIL [Concomitant]
     Dosage: 20 MG, UNK
  9. IRON [Concomitant]
  10. MIRALAX [Concomitant]
     Dosage: UNK, QD
  11. OMEPRAZOLE [Concomitant]
     Dosage: 20 MG, UNK
  12. CALCIUM [Concomitant]
     Dosage: 1200 MG, UNK

REACTIONS (6)
  - LOWER LIMB FRACTURE [None]
  - LISTLESS [None]
  - ASTHENIA [None]
  - SINUSITIS [None]
  - FATIGUE [None]
  - ACCIDENT [None]
